FAERS Safety Report 15184060 (Version 5)
Quarter: 2018Q4

REPORT INFORMATION
  Report Type: Report from Study
  Country: DE (occurrence: DE)
  Receive Date: 20180723
  Receipt Date: 20181015
  Transmission Date: 20190204
  Serious: Yes (Other)
  Sender: FDA-Public Use
  Company Number: DE-BAUSCH-BL-2018-019767

PATIENT
  Age: 40 Year
  Sex: Female

DRUGS (10)
  1. RAMIPRIL. [Suspect]
     Active Substance: RAMIPRIL
     Indication: HYPERTENSION
     Dosage: PREGNANCY WEEK 0-6 (PLUS 4), 1 MONTH 16 DAYS
     Route: 048
     Dates: start: 20130310, end: 20130425
  2. XELEVIA [Suspect]
     Active Substance: SITAGLIPTIN PHOSPHATE
     Indication: TYPE 2 DIABETES MELLITUS
     Dosage: PREGNANCY WEEK 0 TO 6 (PLUS 4), 1 MONTH 16 DAYS 12 HOURS
     Route: 048
     Dates: start: 20130310, end: 20130425
  3. INSULIN HUMAN [Suspect]
     Active Substance: INSULIN HUMAN
     Indication: TYPE 2 DIABETES MELLITUS
     Dosage: PREGNANCY WEEK 0 TO 35 (PLUS 3)
     Route: 065
  4. METFORMIN HYDROCHLORIDE. [Suspect]
     Active Substance: METFORMIN HYDROCHLORIDE
     Indication: TYPE 2 DIABETES MELLITUS
     Dosage: PREGNANCY WEEK 0 TO 6(PLUS 4), 1 MONTH 16 DAYS 12 HRS
     Route: 048
     Dates: start: 20130310, end: 20130425
  5. LEVOTHYROXINE SODIUM. [Suspect]
     Active Substance: LEVOTHYROXINE SODIUM
     Indication: AUTOIMMUNE THYROIDITIS
     Dosage: PREGNANCY WEEK 0 TO 35 (PLUS 3), 8 MONTHS 5 DAYS
     Route: 048
     Dates: start: 20130310, end: 20131113
  6. IODINE. [Suspect]
     Active Substance: IODINE
     Indication: PROPHYLAXIS
     Route: 065
  7. METOPROLOL. [Suspect]
     Active Substance: METOPROLOL
     Indication: PRODUCT USED FOR UNKNOWN INDICATION
     Dosage: PREGNANCY WEEK 7(PLUS 4) TO 35 (PLUS 3), SALT NOT SPECIFIED, 6 MONTHS 13 DAYS
     Route: 048
     Dates: start: 20130502, end: 20131113
  8. FOLIC ACID. [Suspect]
     Active Substance: FOLIC ACID
     Indication: PROPHYLAXIS OF NEURAL TUBE DEFECT
     Route: 048
  9. METHYLDOPA. [Suspect]
     Active Substance: METHYLDOPA
     Indication: HYPERTENSION
     Dosage: PREGNANCY WEEK 7(PLUS 4) TO 35 (PLUS 3), 6 MONTHS 13 DAYS
     Route: 048
     Dates: start: 20130502, end: 20131113
  10. SITAGLIPTIN [Suspect]
     Active Substance: SITAGLIPTIN
     Indication: TYPE 2 DIABETES MELLITUS
     Route: 065

REACTIONS (4)
  - Placental insufficiency [Unknown]
  - Caesarean section [Unknown]
  - Exposure during pregnancy [Recovered/Resolved]
  - Polyhydramnios [Unknown]
